FAERS Safety Report 4469471-9 (Version None)
Quarter: 2004Q4

REPORT INFORMATION
  Report Type: 
  Country: None (occurrence: None)
  Receive Date: 20041005
  Receipt Date: 20040923
  Transmission Date: 20050328
  Serious: Yes (Death, Hospitalization)
  Sender: FDA-Public Use
  Company Number: USA-2004-0016936

PATIENT
  Age: 80 Year
  Sex: Male

DRUGS (6)
  1. MS CONTIN [Suspect]
     Indication: PAIN
     Dosage: ORAL
     Route: 048
  2. FELDENE [Suspect]
     Indication: PAIN
     Dosage: ORAL
     Route: 048
  3. CELEBREX [Suspect]
     Indication: PAIN
     Dosage: ORAL
     Route: 048
  4. NEURONTIN [Suspect]
     Indication: PAIN
     Dosage: ORAL
     Route: 048
  5. AVAPRO [Suspect]
     Indication: HYPERTENSION
  6. PROZAC [Suspect]
     Indication: DEPRESSION

REACTIONS (23)
  - ANXIETY [None]
  - ATRIAL FIBRILLATION [None]
  - BLOOD CREATININE INCREASED [None]
  - BLOOD PH INCREASED [None]
  - BLOOD POTASSIUM DECREASED [None]
  - BLOOD PRESSURE SYSTOLIC INCREASED [None]
  - BLOOD SODIUM DECREASED [None]
  - BODY TEMPERATURE INCREASED [None]
  - CARDIO-RESPIRATORY ARREST [None]
  - CARDIOMEGALY [None]
  - DIARRHOEA [None]
  - MYOCARDIAL INFARCTION [None]
  - NEUTROPHIL COUNT DECREASED [None]
  - NEUTROPHIL COUNT INCREASED [None]
  - OXYGEN SATURATION DECREASED [None]
  - PULMONARY OEDEMA [None]
  - RESPIRATORY ALKALOSIS [None]
  - RESPIRATORY RATE INCREASED [None]
  - URINE OUTPUT DECREASED [None]
  - VENTRICULAR FIBRILLATION [None]
  - VOMITING [None]
  - WHITE BLOOD CELL COUNT DECREASED [None]
  - WHITE BLOOD CELL COUNT INCREASED [None]
